FAERS Safety Report 7829198-X (Version None)
Quarter: 2011Q4

REPORT INFORMATION
  Report Type: 
  Country: None (occurrence: None)
  Receive Date: 20111020
  Receipt Date: 20111013
  Transmission Date: 20120403
  Serious: Yes (Other)
  Sender: FDA-Public Use
  Company Number: PHHY2011AU90922

PATIENT
  Age: 27 Year
  Sex: Female

DRUGS (2)
  1. VALTREX [Concomitant]
     Dosage: UNK UKN, UNK
  2. GILENYA [Suspect]
     Dosage: UNK UKN, UNK

REACTIONS (4)
  - ABDOMINAL PAIN [None]
  - RASH [None]
  - PYREXIA [None]
  - UPPER RESPIRATORY TRACT INFECTION [None]
